FAERS Safety Report 14762516 (Version 1)
Quarter: 2018Q2

REPORT INFORMATION
  Report Type: Spontaneous
  Country: JP (occurrence: JP)
  Receive Date: 20180416
  Receipt Date: 20180416
  Transmission Date: 20180711
  Serious: Yes (Hospitalization, Other)
  Sender: FDA-Public Use
  Company Number: JP-AXELLIA-001573

PATIENT
  Age: 41 Year
  Sex: Male
  Weight: 90 kg

DRUGS (7)
  1. PREGABALIN. [Concomitant]
     Active Substance: PREGABALIN
     Indication: DIABETIC NEUROPATHY
  2. MEXILETINE [Concomitant]
     Active Substance: MEXILETINE
     Indication: DIABETIC NEUROPATHY
  3. LEVOFLOXACIN/LEVOFLOXACIN MESYLATE [Concomitant]
     Indication: PYREXIA
     Route: 048
  4. INSULIN [Concomitant]
     Active Substance: INSULIN NOS
     Indication: TYPE 1 DIABETES MELLITUS
  5. DULOXETINE. [Concomitant]
     Active Substance: DULOXETINE
     Indication: DIABETIC NEUROPATHY
  6. VANCOMYCIN [Suspect]
     Active Substance: VANCOMYCIN
     Indication: ESCHERICHIA INFECTION
     Route: 042
  7. PIPERACILLIN/TAZOBACTAM [Interacting]
     Active Substance: PIPERACILLIN SODIUM\TAZOBACTAM SODIUM
     Indication: ESCHERICHIA INFECTION

REACTIONS (2)
  - Acute kidney injury [Recovering/Resolving]
  - Drug interaction [Unknown]
